FAERS Safety Report 11510252 (Version 1)
Quarter: 2015Q3

REPORT INFORMATION
  Report Type: Spontaneous
  Country: US (occurrence: US)
  Receive Date: 20150915
  Receipt Date: 20150915
  Transmission Date: 20151125
  Serious: No
  Sender: FDA-Public Use
  Company Number: US-JNJFOC-20140818557

PATIENT
  Age: 60 Year
  Sex: Female
  Weight: 43.09 kg

DRUGS (1)
  1. VISINE [Suspect]
     Active Substance: TETRAHYDROZOLINE HYDROCHLORIDE
     Indication: HYPERSENSITIVITY
     Route: 050

REACTIONS (2)
  - Visual impairment [Unknown]
  - Vision blurred [Unknown]
